FAERS Safety Report 18769213 (Version 1)
Quarter: 2021Q1

REPORT INFORMATION
  Report Type: Report from Study
  Country: US (occurrence: US)
  Receive Date: 20210121
  Receipt Date: 20210121
  Transmission Date: 20210419
  Serious: Yes (Death, Other)
  Sender: FDA-Public Use
  Company Number: US-EUSA PHARMA (NETHERLANDS) B.V.-2021US000014

PATIENT

DRUGS (2)
  1. SYLVANT [Suspect]
     Active Substance: SILTUXIMAB
     Indication: PANCREATIC CARCINOMA METASTATIC
     Dosage: 11 MG/KG, IN EVERY 3 WEEKS
     Route: 042
     Dates: start: 20201216, end: 20210106
  2. SPARTALIZUMAB [Suspect]
     Active Substance: SPARTALIZUMAB
     Indication: PANCREATIC CARCINOMA METASTATIC
     Dosage: 300 MG, EVERY 3 WEEKS
     Route: 042

REACTIONS (4)
  - Blood bilirubin increased [Unknown]
  - Fatigue [Unknown]
  - Eastern Cooperative Oncology Group performance status worsened [Unknown]
  - Disease progression [Fatal]

NARRATIVE: CASE EVENT DATE: 20210106
